FAERS Safety Report 18764743 (Version 1)
Quarter: 2021Q1

REPORT INFORMATION
  Report Type: Spontaneous
  Country: US (occurrence: US)
  Receive Date: 20210120
  Receipt Date: 20210120
  Transmission Date: 20210419
  Serious: No
  Sender: FDA-Public Use
  Company Number: US-JNJFOC-20210119369

PATIENT
  Age: 59 Year
  Sex: Female
  Weight: 70.37 kg

DRUGS (1)
  1. VISINE A MULTI?ACTION EYE ALLERGY RELIEF [Suspect]
     Active Substance: NAPHAZOLINE HYDROCHLORIDE\PHENIRAMINE MALEATE
     Indication: EYE PRURITUS
     Dosage: 2 DROPS ONCE A DAY; LAST ADMIN DATE: 11/JAN/2021
     Route: 047

REACTIONS (2)
  - Vision blurred [Recovering/Resolving]
  - Mydriasis [Recovered/Resolved]

NARRATIVE: CASE EVENT DATE: 20210108
